FAERS Safety Report 8483395-1 (Version None)
Quarter: 2012Q3

REPORT INFORMATION
  Report Type: 
  Country: None (occurrence: None)
  Receive Date: 20120702
  Receipt Date: 20120625
  Transmission Date: 20120928
  Serious: Yes (Hospitalization)
  Sender: FDA-Public Use
  Company Number: US-JNJFOC-20120614061

PATIENT
  Sex: Female
  Weight: 57.2 kg

DRUGS (4)
  1. MESALAMINE [Concomitant]
  2. REMICADE [Suspect]
     Indication: INFLAMMATORY BOWEL DISEASE
     Route: 042
     Dates: start: 20110624
  3. METHOTREXATE [Concomitant]
  4. PREDNISONE TAB [Concomitant]

REACTIONS (1)
  - CROHN'S DISEASE [None]
